FAERS Safety Report 19693320 (Version 1)
Quarter: 2021Q3

REPORT INFORMATION
  Report Type: Spontaneous
  Country: US (occurrence: US)
  Receive Date: 20210812
  Receipt Date: 20210812
  Transmission Date: 20211014
  Serious: No
  Sender: FDA-Public Use
  Company Number: US-SA-2021SA266182

PATIENT
  Age: 19 Year
  Sex: Male

DRUGS (2)
  1. ALPROLIX [Suspect]
     Active Substance: EFTRENONACOG ALFA
     Indication: FACTOR IX DEFICIENCY
     Dosage: 4500 IU, QW
     Route: 042
     Dates: start: 202104
  2. ALPROLIX [Suspect]
     Active Substance: EFTRENONACOG ALFA
     Indication: FACTOR IX DEFICIENCY
     Dosage: 4500 IU, QW
     Route: 042
     Dates: start: 202104

REACTIONS (2)
  - Contusion [Unknown]
  - Joint stiffness [Unknown]

NARRATIVE: CASE EVENT DATE: 2021
